FAERS Safety Report 15460946 (Version 2)
Quarter: 2018Q4

REPORT INFORMATION
  Report Type: Spontaneous
  Country: FR (occurrence: FR)
  Receive Date: 20181003
  Receipt Date: 20181030
  Transmission Date: 20190204
  Serious: Yes (Other)
  Sender: FDA-Public Use
  Company Number: FR-MYLANLABS-2018M1071859

PATIENT
  Age: 67 Year
  Sex: Female

DRUGS (4)
  1. ARACYTIN [Suspect]
     Active Substance: CYTARABINE
     Indication: B-CELL LYMPHOMA
     Dosage: 1 G/M2, EVERY 12 HOURS (FROM D-6 TO D-3)
     Route: 065
  2. ETOPOSIDE. [Suspect]
     Active Substance: ETOPOSIDE
     Indication: B-CELL LYMPHOMA
     Dosage: 200 MG/M2, BID, EVERY 12 HOURS (FROM D-6 TO D-3)
     Route: 065
  3. MELPHALAN. [Suspect]
     Active Substance: MELPHALAN
     Indication: B-CELL LYMPHOMA
     Dosage: 140 MG/M2, UNKNOWN FREQ. (D-2)
     Route: 065
  4. BENDAMUSTINE HYDROCHLORIDE. [Suspect]
     Active Substance: BENDAMUSTINE HYDROCHLORIDE
     Indication: B-CELL LYMPHOMA
     Dosage: 200 MG/M2, CYCLIC (ON D-7 AND D-6) POWDER (EXCEPT DUSTING POWDER
     Route: 042

REACTIONS (9)
  - Toxicity to various agents [Unknown]
  - Thrombocytopenia [Not Recovered/Not Resolved]
  - Vomiting [Unknown]
  - Acute kidney injury [Recovering/Resolving]
  - Off label use [Unknown]
  - Diarrhoea [Unknown]
  - Nephropathy toxic [Recovering/Resolving]
  - Venoocclusive liver disease [Recovered/Resolved]
  - Dehydration [Unknown]
